FAERS Safety Report 6939615-5 (Version None)
Quarter: 2010Q3

REPORT INFORMATION
  Report Type: 
  Country: None (occurrence: None)
  Receive Date: 20100820
  Receipt Date: 20100817
  Transmission Date: 20110219
  Serious: Yes (Life-Threatening, Other)
  Sender: FDA-Public Use
  Company Number: 2010SP044395

PATIENT
  Age: 28 Year
  Sex: Female

DRUGS (1)
  1. IMPLANON [Suspect]
     Indication: CONTRACEPTION
     Dosage: ;SBDE
     Route: 059
     Dates: start: 20081001, end: 20100501

REACTIONS (1)
  - ACUTE MYOCARDIAL INFARCTION [None]
